FAERS Safety Report 25980207 (Version 3)
Quarter: 2025Q4

REPORT INFORMATION
  Report Type: Spontaneous
  Country: US (occurrence: US)
  Receive Date: 20251030
  Receipt Date: 20251210
  Transmission Date: 20260117
  Serious: Yes (Other)
  Sender: COLGATE
  Company Number: US-COLGATE PALMOLIVE COMPANY-20251002366

PATIENT

DRUGS (1)
  1. COLGATE BAKING SODA AND PEROXIDE WHITENING BRISK MINT [Suspect]
     Active Substance: SODIUM MONOFLUOROPHOSPHATE
     Indication: Dental disorder prophylaxis
     Dosage: UNKNOWN DOSE

REACTIONS (3)
  - Tooth loss [Unknown]
  - Gingival recession [Unknown]
  - Stomatitis [Unknown]
